FAERS Safety Report 25626728 (Version 1)
Quarter: 2025Q3

REPORT INFORMATION
  Report Type: Spontaneous
  Country: EU (occurrence: EU)
  Receive Date: 20250731
  Receipt Date: 20250731
  Transmission Date: 20251020
  Serious: Yes (Other)
  Sender: MYLAN
  Company Number: EU-MYLANLABS-2025M1062231

PATIENT
  Age: 43 Year
  Sex: Female

DRUGS (5)
  1. GLATIRAMER [Suspect]
     Active Substance: GLATIRAMER
     Indication: Multiple sclerosis
  2. TERIFLUNOMIDE [Suspect]
     Active Substance: TERIFLUNOMIDE
     Indication: Multiple sclerosis
  3. DIMETHYL FUMARATE [Suspect]
     Active Substance: DIMETHYL FUMARATE
     Indication: Multiple sclerosis
  4. ASPIRIN [Concomitant]
     Active Substance: ASPIRIN
     Indication: Moyamoya disease
     Dosage: 100 MILLIGRAM, QD
  5. ASPIRIN [Concomitant]
     Active Substance: ASPIRIN
     Indication: Angiopathy

REACTIONS (3)
  - Lymphopenia [Unknown]
  - Drug ineffective [Unknown]
  - Drug intolerance [Unknown]
